FAERS Safety Report 9527923 (Version 1)
Quarter: 2013Q1

REPORT INFORMATION
  Report Type: Spontaneous
  Country: US (occurrence: None)
  Receive Date: 20130314
  Receipt Date: 20130314
  Transmission Date: 20140127
  Serious: No
  Sender: FDA-Public Use
  Company Number: 1301USA001378

PATIENT
  Sex: 0

DRUGS (1)
  1. VICTRELIS [Suspect]
     Route: 048

REACTIONS (2)
  - Incorrect storage of drug [None]
  - No adverse event [None]
